FAERS Safety Report 25112007 (Version 1)
Quarter: 2025Q1

REPORT INFORMATION
  Report Type: Spontaneous
  Country: US (occurrence: US)
  Receive Date: 20250324
  Receipt Date: 20250324
  Transmission Date: 20250408
  Serious: No
  Sender: GLAXOSMITHKLINE
  Company Number: US-GSK-US2025031464

PATIENT
  Age: 90 Year
  Sex: Female
  Weight: 79.83 kg

DRUGS (1)
  1. TRELEGY ELLIPTA [Suspect]
     Active Substance: FLUTICASONE FUROATE\UMECLIDINIUM BROMIDE\VILANTEROL TRIFENATATE
     Indication: Asthma
     Dates: start: 202209

REACTIONS (3)
  - Nasopharyngitis [Unknown]
  - Vision blurred [Unknown]
  - Amnesia [Unknown]

NARRATIVE: CASE EVENT DATE: 20250201
